FAERS Safety Report 7291768-8 (Version None)
Quarter: 2011Q1

REPORT INFORMATION
  Report Type: 
  Country: None (occurrence: None)
  Receive Date: 20110214
  Receipt Date: 20110203
  Transmission Date: 20110831
  Serious: Yes (Death, Hospitalization)
  Sender: FDA-Public Use
  Company Number: JP-PFIZER INC-2011018902

PATIENT
  Age: 78 Year
  Sex: Female
  Weight: 52 kg

DRUGS (5)
  1. SEROTONE [Concomitant]
     Indication: PREMEDICATION
     Dosage: 10 MG, UNK
     Route: 041
     Dates: start: 20101201, end: 20101201
  2. CAMPTOSAR [Suspect]
     Indication: GASTRIC CANCER
     Dosage: 140 MG
     Route: 041
     Dates: start: 20101201, end: 20101201
  3. FLUMARIN [Concomitant]
     Indication: PYREXIA
     Dosage: 1 G, 2X/DAY
     Route: 041
     Dates: start: 20101212, end: 20101214
  4. TS-1 [Suspect]
     Indication: GASTRIC CANCER
     Dosage: 50 MG, 2X/DAY
     Route: 048
     Dates: start: 20101201, end: 20101211
  5. DECADRON [Concomitant]
     Indication: PREMEDICATION
     Dosage: 6.6 MG, UNK
     Route: 041
     Dates: start: 20101201, end: 20101201

REACTIONS (6)
  - THROMBOCYTOPENIA [None]
  - DIARRHOEA [None]
  - DECREASED APPETITE [None]
  - LEUKOPENIA [None]
  - HYPERGLYCAEMIA [None]
  - CEREBRAL INFARCTION [None]
